FAERS Safety Report 24142744 (Version 4)
Quarter: 2024Q4

REPORT INFORMATION
  Report Type: Spontaneous
  Country: RS (occurrence: RS)
  Receive Date: 20240726
  Receipt Date: 20241202
  Transmission Date: 20250115
  Serious: Yes (Hospitalization, Other)
  Sender: ALEXION PHARMACEUTICALS
  Company Number: 2024A165550

PATIENT

DRUGS (21)
  1. FASENRA [Suspect]
     Active Substance: BENRALIZUMAB
     Dosage: 30 MILLIGRAM, UNK, FREQUENCY: UNK
  2. FASENRA [Suspect]
     Active Substance: BENRALIZUMAB
     Dosage: 30 MILLIGRAM, UNK, FREQUENCY: UNK
  3. FASENRA [Suspect]
     Active Substance: BENRALIZUMAB
     Dosage: 30 MILLIGRAM, UNK, FREQUENCY: UNK
  4. FASENRA [Suspect]
     Active Substance: BENRALIZUMAB
     Dosage: 30 MILLIGRAM, UNK, FREQUENCY: UNK
  5. DEXAMETHASONE [Concomitant]
     Active Substance: DEXAMETHASONE
  6. PROBIOTICS NOS [Concomitant]
     Active Substance: PROBIOTICS NOS
  7. SPIRIVA [Concomitant]
     Active Substance: TIOTROPIUM BROMIDE MONOHYDRATE
  8. XYZAL [Concomitant]
     Active Substance: LEVOCETIRIZINE DIHYDROCHLORIDE
  9. DIGOXIN, TRIMETOZINE, VERAPAMIL HYDROCHLORIDE [Concomitant]
     Dosage: 80 MILLIGRAM, UNK
  10. CALCIUM CARBONATE\SODIUM ALGINATE\SODIUM BICARBONATE\SODIUM CARBONATE [Concomitant]
     Active Substance: CALCIUM CARBONATE\SODIUM ALGINATE\SODIUM BICARBONATE\SODIUM CARBONATE
  11. GELOREVOICE [Concomitant]
  12. KANAZOL [Concomitant]
     Dosage: 100 MILLIGRAM, UNK
  13. FOSTER [Concomitant]
     Active Substance: BECLOMETHASONE\FORMOTEROL
  14. SINGULAIR [Concomitant]
     Active Substance: MONTELUKAST SODIUM
  15. CHOLECALCIFEROL [Concomitant]
     Active Substance: CHOLECALCIFEROL
  16. TORSEMIDE [Concomitant]
     Active Substance: TORSEMIDE
     Dosage: 10 MILLIGRAM, UNK
  17. GASTROPERIDON [Concomitant]
  18. GASTROPRAZOL [Concomitant]
     Dosage: 20 MILLIGRAM, UNK
  19. MOMENSA [Concomitant]
  20. UNSPECIFIED INGREDIENT [Concomitant]
     Active Substance: UNSPECIFIED INGREDIENT
  21. YANIDA [Concomitant]

REACTIONS (3)
  - Systemic candida [Recovering/Resolving]
  - Bronchitis [Recovering/Resolving]
  - Drug ineffective [Unknown]
